FAERS Safety Report 5229635-3 (Version None)
Quarter: 2007Q1

REPORT INFORMATION
  Report Type: 
  Country: None (occurrence: None)
  Receive Date: 20070201
  Receipt Date: 20070127
  Transmission Date: 20070707
  Serious: Yes (Life-Threatening)
  Sender: FDA-Public Use
  Company Number: 230127

PATIENT
  Age: 68 Year
  Sex: Female
  Weight: 91.6 kg

DRUGS (2)
  1. AVASTIN [Suspect]
     Indication: NON-SMALL CELL LUNG CANCER
     Dosage: 680 MG, Q3W, INTRAVENOUS
     Route: 042
  2. ERLOTINIB (ERLOTINIB) TABLET [Suspect]
     Indication: NON-SMALL CELL LUNG CANCER

REACTIONS (1)
  - DIVERTICULITIS [None]
